FAERS Safety Report 4981884-5 (Version None)
Quarter: 2006Q2

REPORT INFORMATION
  Report Type: 
  Country: None (occurrence: None)
  Receive Date: 20060425
  Receipt Date: 20060413
  Transmission Date: 20061013
  Serious: Yes (Other)
  Sender: FDA-Public Use
  Company Number: FR-JNJFOC-20060306318

PATIENT
  Age: 57 Year
  Sex: Male

DRUGS (7)
  1. CONTRAMAL [Suspect]
     Indication: DRUG USE FOR UNKNOWN INDICATION
     Route: 065
  2. RANOLAZINE [Suspect]
     Indication: ISCHAEMIC HEART DISEASE PROPHYLAXIS
     Route: 065
  3. PLAVIX [Concomitant]
     Indication: MYOCARDIAL ISCHAEMIA
     Route: 065
  4. ASPEGIC 1000 [Concomitant]
     Indication: MYOCARDIAL ISCHAEMIA
     Route: 065
  5. BETA BLOCKING AGENTS [Concomitant]
     Route: 065
  6. TENORMIN [Concomitant]
     Indication: MYOCARDIAL ISCHAEMIA
  7. TAHOR [Concomitant]
     Indication: MYOCARDIAL ISCHAEMIA

REACTIONS (3)
  - TINNITUS [None]
  - TREMOR [None]
  - VISION BLURRED [None]
